FAERS Safety Report 19717756 (Version 1)
Quarter: 2021Q3

REPORT INFORMATION
  Report Type: Spontaneous
  Country: NL (occurrence: NL)
  Receive Date: 20210819
  Receipt Date: 20210819
  Transmission Date: 20211014
  Serious: Yes (Life-Threatening, Hospitalization, Other)
  Sender: FDA-Public Use
  Company Number: NL-B.I. PHARMACEUTICALS,INC./RIDGEFIELD-2021-BI-122352

PATIENT
  Sex: Male
  Weight: 84 kg

DRUGS (4)
  1. TOLBUTAMIDE. [Concomitant]
     Active Substance: TOLBUTAMIDE
     Indication: PRODUCT USED FOR UNKNOWN INDICATION
     Dosage: TABLET, 1000 MG (MILLIGRAM)
  2. METFORMINE [METFORMIN] [Concomitant]
     Active Substance: METFORMIN HYDROCHLORIDE
     Indication: PRODUCT USED FOR UNKNOWN INDICATION
     Dosage: TABLET, 1000 MG (MILLIGRAM)
  3. JARDIANCE [Suspect]
     Active Substance: EMPAGLIFLOZIN
     Indication: TYPE 2 DIABETES MELLITUS
     Dosage: 1X PER DAG 1 STUK VAN 25MG/ 1X PER DAY 1 DOSE OF 25MG
     Dates: start: 2019, end: 20210804
  4. PREDNISOLON [PREDNISOLONE] [Concomitant]
     Active Substance: PREDNISOLONE
     Indication: PRODUCT USED FOR UNKNOWN INDICATION
     Dosage: CAPSULE, 20 MG (MILLIGRAM)

REACTIONS (1)
  - Diabetic ketoacidosis [Recovering/Resolving]
